FAERS Safety Report 4733295-5 (Version None)
Quarter: 2005Q3

REPORT INFORMATION
  Report Type: 
  Country: None (occurrence: None)
  Receive Date: 20050721
  Receipt Date: 20050515
  Transmission Date: 20060218
  Serious: No
  Sender: FDA-Public Use
  Company Number: 2005SP000815

PATIENT
  Sex: 0

DRUGS (1)
  1. LUNESTA [Suspect]

REACTIONS (2)
  - DYSGEUSIA [None]
  - SOMNOLENCE [None]
